FAERS Safety Report 10343501 (Version 1)
Quarter: 2014Q3

REPORT INFORMATION
  Report Type: Spontaneous
  Country: CH (occurrence: CH)
  Receive Date: 20140725
  Receipt Date: 20140725
  Transmission Date: 20150326
  Serious: Yes (Hospitalization)
  Sender: FDA-Public Use
  Company Number: CH-GE HEALTHCARE MEDICAL DIAGNOSTICS-OMPQ-PR-1407S-0800

PATIENT
  Age: 90 Year
  Sex: Female
  Weight: 81 kg

DRUGS (10)
  1. ACCUPAQUE [Suspect]
     Active Substance: IOHEXOL
     Indication: CEREBROVASCULAR ACCIDENT
     Route: 042
     Dates: start: 20140427, end: 20140427
  2. NEXIUM [Concomitant]
     Active Substance: ESOMEPRAZOLE MAGNESIUM
     Indication: DYSPEPSIA
     Route: 048
  3. ACCUPAQUE [Suspect]
     Active Substance: IOHEXOL
     Indication: DIAGNOSTIC PROCEDURE
  4. SINTROM [Suspect]
     Active Substance: ACENOCOUMAROL
     Indication: ATRIAL FIBRILLATION
     Route: 048
     Dates: start: 2010
  5. ACCUPAQUE [Suspect]
     Active Substance: IOHEXOL
     Indication: RETROPERITONEAL HAEMORRHAGE
     Route: 042
     Dates: start: 20140501, end: 20140501
  6. ACCUPAQUE [Suspect]
     Active Substance: IOHEXOL
     Indication: EMBOLISM ARTERIAL
  7. LEVOTHYROXINE [Concomitant]
     Active Substance: LEVOTHYROXINE
     Indication: HYPOTHYROIDISM
     Route: 048
  8. BELOC [Concomitant]
     Active Substance: METOPROLOL TARTRATE
     Indication: ESSENTIAL HYPERTENSION
     Route: 048
  9. CLEXANE [Suspect]
     Active Substance: ENOXAPARIN SODIUM
     Indication: CEREBRAL ARTERY EMBOLISM
     Route: 058
     Dates: start: 20140428, end: 20140502
  10. ACCUPAQUE [Suspect]
     Active Substance: IOHEXOL
     Indication: APHASIA
     Dosage: DOSE NOT REPORTED
     Route: 042
     Dates: start: 20140501, end: 20140501

REACTIONS (2)
  - Retroperitoneal haemorrhage [Recovered/Resolved]
  - Renal failure acute [Recovered/Resolved]

NARRATIVE: CASE EVENT DATE: 20140501
